FAERS Safety Report 10274552 (Version 1)
Quarter: 2014Q3

REPORT INFORMATION
  Report Type: Report from Study
  Country: GB (occurrence: GB)
  Receive Date: 20140702
  Receipt Date: 20140702
  Transmission Date: 20150326
  Serious: Yes (Death)
  Sender: FDA-Public Use
  Company Number: GB-ABBVIE-14P-167-1253789-00

PATIENT
  Sex: Female
  Weight: 51 kg

DRUGS (2)
  1. METHOTREXATE [Concomitant]
     Active Substance: METHOTREXATE
     Indication: RHEUMATOID ARTHRITIS
  2. HUMIRA [Suspect]
     Active Substance: ADALIMUMAB
     Indication: RHEUMATOID ARTHRITIS
     Route: 058
     Dates: start: 20050915, end: 20060515

REACTIONS (4)
  - Pneumonia [Fatal]
  - Femoral neck fracture [Fatal]
  - Cardiac failure congestive [Fatal]
  - Rheumatoid arthritis [Fatal]
